FAERS Safety Report 5117785-1 (Version None)
Quarter: 2006Q3

REPORT INFORMATION
  Report Type: 
  Country: None (occurrence: None)
  Receive Date: 20060926
  Receipt Date: 20060914
  Transmission Date: 20061208
  Serious: Yes (Hospitalization)
  Sender: FDA-Public Use
  Company Number: 2006-02401

PATIENT
  Age: 59 Year
  Sex: Female
  Weight: 94 kg

DRUGS (2)
  1. VELCADE [Suspect]
     Indication: MULTIPLE MYELOMA
     Dosage: 1.30 MG/M2, INTRAVENOUS
     Route: 042
     Dates: start: 20060612, end: 20060905
  2. MELPHALAN (MELPHALAN) VIAL [Suspect]
     Indication: MULTIPLE MYELOMA
     Dosage: 15.00 MG, INTRAVENOUS
     Route: 042
     Dates: start: 20060613, end: 20060905

REACTIONS (3)
  - PAIN [None]
  - PYREXIA [None]
  - VOMITING [None]
